FAERS Safety Report 7689695-7 (Version None)
Quarter: 2011Q3

REPORT INFORMATION
  Report Type: 
  Country: None (occurrence: None)
  Receive Date: 20110817
  Receipt Date: 20090622
  Transmission Date: 20111222
  Serious: Yes (Death)
  Sender: FDA-Public Use
  Company Number: US-BAYER-200923768NA

PATIENT
  Age: 64 Year
  Sex: Male
  Weight: 72.562 kg

DRUGS (38)
  1. MAGNEVIST [Suspect]
     Dosage: UNK, ONCE
     Dates: start: 20050811, end: 20050811
  2. NORVASC [Concomitant]
  3. FUROSEMIDE [Concomitant]
  4. MAGNEVIST [Suspect]
     Indication: ANGIOGRAM
     Dosage: UNK, ONCE
     Dates: start: 20040520, end: 20040520
  5. PREDNISONE [Concomitant]
  6. ASPIRIN [Concomitant]
  7. MAGNEVIST [Suspect]
     Dosage: UNK, ONCE
     Dates: start: 20050201, end: 20050201
  8. MAGNEVIST [Suspect]
     Dosage: UNK, ONCE
     Dates: start: 20060707, end: 20060707
  9. ANTINEOPLASTIC AGENTS [Concomitant]
     Indication: SARCOMA
     Dates: start: 20071001
  10. THALIDOMIDE [Concomitant]
  11. MAGNEVIST [Suspect]
     Dates: start: 20070613, end: 20070613
  12. OMNISCAN [Suspect]
     Indication: NUCLEAR MAGNETIC RESONANCE IMAGING
  13. PROCRIT [Concomitant]
  14. ATACAND [Concomitant]
  15. TOBRADEX [Concomitant]
  16. DOXAZOSIN MESYLATE [Concomitant]
  17. HECTOROL [Concomitant]
  18. MAGNEVIST [Suspect]
     Indication: NUCLEAR MAGNETIC RESONANCE IMAGING
     Dates: start: 20070110, end: 20070110
  19. MAGNEVIST [Suspect]
     Dosage: UNK, ONCE
     Dates: start: 20061018, end: 20061018
  20. ALLOPURINOL [Concomitant]
  21. TOPROL-XL [Concomitant]
  22. EPOGEN [Concomitant]
  23. AMLODIPINE [Concomitant]
  24. DOXIL [Concomitant]
  25. BACTRIM [Concomitant]
     Indication: OEDEMA PERIPHERAL
  26. LISINOPRIL [Concomitant]
  27. ARANESP [Concomitant]
  28. MAGNEVIST [Suspect]
     Dosage: UNK, ONCE
     Dates: start: 20070323, end: 20070323
  29. COLCHICINE [Concomitant]
  30. KEFLEX [Concomitant]
     Indication: ERYTHEMA
  31. PHOSLO [Concomitant]
  32. MAGNEVIST [Suspect]
     Dosage: UNK, ONCE
     Route: 042
     Dates: start: 20040708, end: 20040708
  33. OMNISCAN [Suspect]
     Indication: ANGIOGRAM
  34. LASIX [Concomitant]
  35. NEXAVAR [Concomitant]
     Indication: SARCOMA
  36. IFOSFAMIDE [Concomitant]
  37. VENTOLIN HFA [Concomitant]
  38. VORINOSTAT [Concomitant]

REACTIONS (11)
  - SKIN FIBROSIS [None]
  - ANHEDONIA [None]
  - OEDEMA [None]
  - SKIN DISCOLOURATION [None]
  - OEDEMA PERIPHERAL [None]
  - SKIN HYPERPIGMENTATION [None]
  - NEPHROGENIC SYSTEMIC FIBROSIS [None]
  - SKIN TIGHTNESS [None]
  - LUNG DISORDER [None]
  - ANXIETY [None]
  - PAIN [None]
